FAERS Safety Report 19018448 (Version 1)
Quarter: 2021Q1

REPORT INFORMATION
  Report Type: Spontaneous
  Country: US (occurrence: US)
  Receive Date: 20210317
  Receipt Date: 20210317
  Transmission Date: 20210420
  Serious: Yes (Other)
  Sender: FDA-Public Use
  Company Number: US-AMGEN-USASP2021039767

PATIENT

DRUGS (1)
  1. XGEVA [Suspect]
     Active Substance: DENOSUMAB
     Indication: PROPHYLAXIS
     Dosage: UNK UNK, QMO
     Route: 065

REACTIONS (5)
  - Plasma cell myeloma [Unknown]
  - Pathological fracture [Unknown]
  - Bone lesion [Unknown]
  - Spinal compression fracture [Unknown]
  - Hypocalcaemia [Unknown]
